FAERS Safety Report 10035159 (Version 2)
Quarter: 2014Q1

REPORT INFORMATION
  Report Type: Report from Study
  Country: DE (occurrence: DE)
  Receive Date: 20140325
  Receipt Date: 20140325
  Transmission Date: 20141002
  Serious: Yes (Death, Hospitalization, Other)
  Sender: FDA-Public Use
  Company Number: DE-ROCHE-743370

PATIENT
  Age: 66 Year
  Sex: Male
  Weight: 84 kg

DRUGS (4)
  1. MYCOPHENOLATE MOFETIL [Suspect]
     Indication: RENAL TRANSPLANT
     Route: 048
  2. TACROLIMUS [Suspect]
     Indication: RENAL TRANSPLANT
     Route: 048
  3. PREDNISOLONE [Suspect]
     Indication: RENAL TRANSPLANT
     Route: 048
  4. THYMOGLOBULIN [Suspect]
     Indication: RENAL TRANSPLANT
     Route: 065

REACTIONS (4)
  - Cardiac arrest [Fatal]
  - Acute myocardial infarction [Recovered/Resolved with Sequelae]
  - Complications of transplanted kidney [Recovered/Resolved]
  - Pulmonary oedema [Recovered/Resolved]
